FAERS Safety Report 9536273 (Version 1)
Quarter: 2013Q2

REPORT INFORMATION
  Report Type: Spontaneous
  Country: US (occurrence: None)
  Receive Date: 20130507
  Receipt Date: 20130507
  Transmission Date: 20140414
  Serious: Yes (Other)
  Sender: FDA-Public Use
  Company Number: PHEH2013US000792

PATIENT
  Sex: Male

DRUGS (15)
  1. AFINITOR (RAD) TABLET, 10MG [Suspect]
     Route: 048
  2. FUROSEMIDE (FUROSEMIDE ) TABLET [Concomitant]
  3. DILTIAZEM (DILTIAZEM) [Concomitant]
  4. GLIMEPRIDE (GLIMEPIRIDE) [Concomitant]
  5. FENOFIBRATE (FENOFIBRATE) CAPSULE [Concomitant]
  6. HYDROCORT (HYDROCORTISONE ACETATE) [Concomitant]
  7. LEVEMIR (INSULIN DETEMIR) [Concomitant]
  8. METOPROLOL (METOPROLOL) TABLET [Concomitant]
  9. LEVOTHYROXIN (LEVOTHYROXINE SODIUM) TABLET [Concomitant]
  10. WARFARIN (WARFARIN) TABLET [Concomitant]
  11. PLAVIX (CLOPIDOGREL BISULFATE) TABLET [Concomitant]
  12. POTASSIUM (POTASSIUM) TABLET [Concomitant]
  13. VIT D3 (COLECALCIFEROL) CAPSULE [Concomitant]
  14. LORTAB (HYDROCODONE BITARTRATE, PARACETAMOL) [Concomitant]
  15. ASA (ACETYLSALICYLIC ACID) TABLET [Concomitant]

REACTIONS (6)
  - Blood glucose increased [None]
  - Wheezing [None]
  - Hair disorder [None]
  - Cough [None]
  - Irritability [None]
  - Chest pain [None]
